FAERS Safety Report 5098328-8 (Version None)
Quarter: 2006Q3

REPORT INFORMATION
  Report Type: 
  Country: None (occurrence: None)
  Receive Date: 20060906
  Receipt Date: 20060831
  Transmission Date: 20061208
  Serious: Yes (Hospitalization)
  Sender: FDA-Public Use
  Company Number: NL-BOEHRINGER INGELHEIM PHARMACEUTICALS, INC.-2006-NL-00240NL

PATIENT
  Sex: Male
  Weight: 65 kg

DRUGS (1)
  1. SPIRIVA [Suspect]

REACTIONS (1)
  - RENAL NEOPLASM [None]
